FAERS Safety Report 23607360 (Version 2)
Quarter: 2024Q1

REPORT INFORMATION
  Report Type: Report from Study
  Country: US (occurrence: US)
  Receive Date: 20240307
  Receipt Date: 20240315
  Transmission Date: 20240410
  Serious: No
  Sender: FDA-Public Use
  Company Number: US-ABBVIE-5668677

PATIENT
  Age: 73 Year
  Sex: Male
  Weight: 99.79 kg

DRUGS (4)
  1. LINZESS [Suspect]
     Active Substance: LINACLOTIDE
     Indication: Diverticulum
     Dosage: 1 CAPSULE, FORM STRENGTH: 290 MICROGRAM
     Route: 048
     Dates: start: 20240203
  2. LINZESS [Suspect]
     Active Substance: LINACLOTIDE
     Indication: Diverticulum
     Dosage: FORM STRENGTH: 145 MICROGRAM
     Route: 048
  3. LINZESS [Suspect]
     Active Substance: LINACLOTIDE
     Indication: Diverticulum
     Dosage: 1 CAPSULE, FORM STRENGTH: 145 MICROGRAM
     Route: 048
     Dates: start: 202211, end: 20240202
  4. ROSUVASTATIN [Concomitant]
     Active Substance: ROSUVASTATIN
     Indication: Cardiac disorder
     Dosage: FORM STRENGTH: 20 MILLIGRAM
     Route: 065

REACTIONS (7)
  - Bowel movement irregularity [Unknown]
  - Diarrhoea [Not Recovered/Not Resolved]
  - Off label use [Recovering/Resolving]
  - Therapeutic product effect incomplete [Not Recovered/Not Resolved]
  - Abdominal tenderness [Not Recovered/Not Resolved]
  - Abdominal discomfort [Not Recovered/Not Resolved]
  - Flatulence [Unknown]

NARRATIVE: CASE EVENT DATE: 20221101
